FAERS Safety Report 13410606 (Version 1)
Quarter: 2017Q2

REPORT INFORMATION
  Report Type: Report from Study
  Country: US (occurrence: US)
  Receive Date: 20170406
  Receipt Date: 20170406
  Transmission Date: 20170830
  Serious: Yes (Other)
  Sender: FDA-Public Use
  Company Number: US-AMGEN-USASL2017048405

PATIENT
  Age: 75 Year
  Sex: Female

DRUGS (1)
  1. ENBREL [Suspect]
     Active Substance: ETANERCEPT
     Indication: RHEUMATOID ARTHRITIS
     Dosage: 50 MG, QWK
     Route: 065

REACTIONS (6)
  - Sjogren^s syndrome [Unknown]
  - Tremor [Unknown]
  - Accidental exposure to product [Unknown]
  - Injection site pain [Unknown]
  - Fibromyalgia [Unknown]
  - Underdose [Unknown]

NARRATIVE: CASE EVENT DATE: 2016
